FAERS Safety Report 5566724-8 (Version None)
Quarter: 2007Q4

REPORT INFORMATION
  Report Type: 
  Country: None (occurrence: None)
  Receive Date: 20071219
  Receipt Date: 20030728
  Transmission Date: 20080405
  Serious: Yes (Death)
  Sender: FDA-Public Use
  Company Number: US-ROCHE-529532

PATIENT
  Sex: Male

DRUGS (1)
  1. VERSED [Suspect]
     Indication: SEDATION
     Route: 065

REACTIONS (1)
  - CARDIAC FAILURE [None]
